FAERS Safety Report 10023805 (Version 1)
Quarter: 2014Q1

REPORT INFORMATION
  Report Type: Report from Study
  Country: CA (occurrence: CA)
  Receive Date: 20140320
  Receipt Date: 20140320
  Transmission Date: 20141002
  Serious: Yes (Other)
  Sender: FDA-Public Use
  Company Number: CA-JNJFOC-20140309531

PATIENT
  Age: 53 Year
  Sex: Female
  Weight: 74 kg

DRUGS (2)
  1. REMICADE [Suspect]
     Indication: COLITIS ULCERATIVE
     Route: 042
     Dates: start: 2014
  2. REMICADE [Suspect]
     Indication: COLITIS ULCERATIVE
     Route: 042
     Dates: start: 20081215

REACTIONS (5)
  - Loss of consciousness [Unknown]
  - Dizziness [Unknown]
  - Cough [Unknown]
  - Nasopharyngitis [Unknown]
  - Fatigue [Unknown]
